FAERS Safety Report 14675562 (Version 2)
Quarter: 2018Q2

REPORT INFORMATION
  Report Type: Spontaneous
  Country: BR (occurrence: BR)
  Receive Date: 20180323
  Receipt Date: 20180404
  Transmission Date: 20180711
  Serious: Yes (Other)
  Sender: FDA-Public Use
  Company Number: BR-009507513-1803BRA007724

PATIENT
  Age: 29 Year
  Sex: Female
  Weight: 82 kg

DRUGS (2)
  1. IMPLANON [Suspect]
     Active Substance: ETONOGESTREL
     Indication: WEIGHT DECREASED
     Dosage: UNK
     Route: 059
     Dates: start: 20161104
  2. IMPLANON [Suspect]
     Active Substance: ETONOGESTREL
     Indication: FEELING OF RELAXATION

REACTIONS (4)
  - Drug ineffective [Unknown]
  - Product use in unapproved indication [Unknown]
  - Depression [Not Recovered/Not Resolved]
  - Weight increased [Not Recovered/Not Resolved]

NARRATIVE: CASE EVENT DATE: 20161104
